FAERS Safety Report 5781193-0 (Version None)
Quarter: 2008Q2

REPORT INFORMATION
  Report Type: 
  Country: None (occurrence: None)
  Receive Date: 20080618
  Receipt Date: 20080605
  Transmission Date: 20081010
  Serious: Yes (Other)
  Sender: FDA-Public Use
  Company Number: 235349J08USA

PATIENT
  Age: 44 Year
  Sex: Female

DRUGS (2)
  1. REBIF [Suspect]
     Indication: MULTIPLE SCLEROSIS
     Dosage: 44 MCG, 3 IN 1 WEEKS, SUBCUTANEOUS
     Route: 058
     Dates: start: 20080319
  2. METFORMIN HCL [Concomitant]

REACTIONS (10)
  - AMENORRHOEA [None]
  - ANOREXIA [None]
  - CONDITION AGGRAVATED [None]
  - INFLUENZA LIKE ILLNESS [None]
  - LYMPHOMA [None]
  - MIGRAINE [None]
  - MUSCLE SPASMS [None]
  - NASOPHARYNGITIS [None]
  - SLEEP DISORDER [None]
  - WEIGHT DECREASED [None]
